FAERS Safety Report 16557445 (Version 1)
Quarter: 2019Q3

REPORT INFORMATION
  Report Type: Spontaneous
  Country: AT (occurrence: AT)
  Receive Date: 20190711
  Receipt Date: 20190711
  Transmission Date: 20191004
  Serious: Yes (Hospitalization, Other)
  Sender: FDA-Public Use
  Company Number: AT-PFIZER INC-2019289287

PATIENT
  Age: 37 Year
  Sex: Female

DRUGS (9)
  1. MIRTEL [Suspect]
     Active Substance: MIRTAZAPINE
     Dosage: 15 MG, UNK
     Dates: start: 20190218, end: 20190220
  2. SUBSTITOL [Concomitant]
     Active Substance: MORPHINE SULFATE
     Dosage: 600 MG, UNK
  3. VENLAFAXINE HCL [Suspect]
     Active Substance: VENLAFAXINE HYDROCHLORIDE
     Dosage: 75 MG, UNK
     Dates: start: 20190209, end: 20190221
  4. MIRTEL [Suspect]
     Active Substance: MIRTAZAPINE
     Dosage: 15 MG, UNK
     Dates: start: 20190129, end: 20190129
  5. IXEL [Concomitant]
     Active Substance: MILNACIPRAN HYDROCHLORIDE
     Dosage: 100 MG, UNK
     Dates: start: 20190129, end: 20190209
  6. MIRTEL [Suspect]
     Active Substance: MIRTAZAPINE
     Dosage: 30 MG, UNK
     Dates: start: 20190130, end: 20190217
  7. IXEL [Concomitant]
     Active Substance: MILNACIPRAN HYDROCHLORIDE
     Dosage: 50 MG, UNK
     Dates: start: 20190128, end: 20190128
  8. LAMOTRIGINE. [Suspect]
     Active Substance: LAMOTRIGINE
     Dosage: 25 MG, UNK
     Dates: start: 20190215, end: 20190217
  9. PRAXITEN [Concomitant]
     Active Substance: OXAZEPAM
     Dosage: 150 MG, UNK
     Dates: start: 20190130

REACTIONS (1)
  - Drug-induced liver injury [Recovering/Resolving]

NARRATIVE: CASE EVENT DATE: 20190215
